FAERS Safety Report 19421132 (Version 1)
Quarter: 2021Q2

REPORT INFORMATION
  Report Type: Spontaneous
  Country: GB (occurrence: GB)
  Receive Date: 20210616
  Receipt Date: 20210616
  Transmission Date: 20210717
  Serious: Yes (Other)
  Sender: FDA-Public Use
  Company Number: GB-ABBVIE-21K-167-3944979-00

PATIENT
  Age: 29 Year
  Sex: Female

DRUGS (14)
  1. CLOBAZAM. [Suspect]
     Active Substance: CLOBAZAM
     Route: 065
     Dates: start: 202006, end: 202007
  2. VALPROATE SODIUM. [Suspect]
     Active Substance: VALPROATE SODIUM
     Route: 048
  3. CLOBAZAM. [Suspect]
     Active Substance: CLOBAZAM
     Indication: ILL-DEFINED DISORDER
     Dosage: UNK, (REDUCED DOSE)
     Route: 065
     Dates: start: 202004, end: 202005
  4. CLOBAZAM. [Suspect]
     Active Substance: CLOBAZAM
     Dosage: (5MG/10MG)
     Route: 065
     Dates: start: 202006, end: 202006
  5. CLOBAZAM. [Suspect]
     Active Substance: CLOBAZAM
     Dosage: (20MG/25MG)
     Route: 065
  6. EPIDYOLEX [Suspect]
     Active Substance: CANNABIDIOL
     Indication: LENNOX-GASTAUT SYNDROME
     Dosage: 5.1 MG/KG/DAY
     Route: 048
     Dates: start: 20200326, end: 202006
  7. CLOBAZAM. [Suspect]
     Active Substance: CLOBAZAM
     Dosage: UNK, (REDUCED DOSE)
     Route: 065
     Dates: start: 202005, end: 202006
  8. CLOBAZAM. [Suspect]
     Active Substance: CLOBAZAM
     Route: 065
     Dates: start: 202007, end: 202008
  9. VALPROATE SODIUM. [Suspect]
     Active Substance: VALPROATE SODIUM
     Indication: LENNOX-GASTAUT SYNDROME
     Dosage: 1000 MILLIGRAM, BID
     Route: 048
     Dates: start: 1992
  10. EPIDYOLEX [Suspect]
     Active Substance: CANNABIDIOL
     Dosage: 5.1 MG/KG/DAY
     Route: 048
     Dates: start: 202008
  11. EPIDYOLEX [Suspect]
     Active Substance: CANNABIDIOL
     Dosage: 4.1 MG/KG/DAY
     Route: 048
     Dates: start: 202006, end: 202008
  12. CLOBAZAM. [Suspect]
     Active Substance: CLOBAZAM
     Route: 065
     Dates: start: 202006, end: 202006
  13. CLOBAZAM. [Suspect]
     Active Substance: CLOBAZAM
     Route: 065
     Dates: start: 202008
  14. LAMOTRIGINE. [Concomitant]
     Active Substance: LAMOTRIGINE
     Indication: PRODUCT USED FOR UNKNOWN INDICATION

REACTIONS (8)
  - Partial seizures [Recovered/Resolved]
  - Alopecia [Recovered/Resolved]
  - Vomiting [Recovered/Resolved]
  - Drug interaction [Recovered/Resolved]
  - Fatigue [Recovered/Resolved]
  - Hypersomnia [Recovered/Resolved]
  - Gait disturbance [Recovered/Resolved]
  - Toxicity to various agents [Recovered/Resolved]

NARRATIVE: CASE EVENT DATE: 202004
